FAERS Safety Report 6316273-4 (Version None)
Quarter: 2009Q3

REPORT INFORMATION
  Report Type: 
  Country: None (occurrence: None)
  Receive Date: 20090820
  Receipt Date: 20090814
  Transmission Date: 20100115
  Serious: Yes (Death)
  Sender: FDA-Public Use
  Company Number: KR-AVENTIS-200914921EU

PATIENT
  Age: 72 Year
  Sex: Male
  Weight: 67 kg

DRUGS (3)
  1. CLEXANE [Suspect]
     Route: 042
  2. CLEXANE [Suspect]
     Route: 042
  3. PLAVIX [Suspect]
     Route: 048

REACTIONS (1)
  - DEATH [None]
